FAERS Safety Report 6044722-8 (Version None)
Quarter: 2009Q1

REPORT INFORMATION
  Report Type: 
  Country: None (occurrence: None)
  Receive Date: 20090120
  Receipt Date: 20090113
  Transmission Date: 20090719
  Serious: Yes (Death)
  Sender: FDA-Public Use
  Company Number: DK-JNJCH-2009001157

PATIENT

DRUGS (1)
  1. NICOTINE [Suspect]
     Indication: DRUG EXPOSURE DURING PREGNANCY
     Dosage: TEXT:UNSPECIFIED
     Route: 064

REACTIONS (2)
  - DRUG EXPOSURE DURING PREGNANCY [None]
  - STILLBIRTH [None]
